FAERS Safety Report 22988466 (Version 2)
Quarter: 2023Q4

REPORT INFORMATION
  Report Type: Spontaneous
  Country: GB (occurrence: GB)
  Receive Date: 20230926
  Receipt Date: 20231020
  Transmission Date: 20240110
  Serious: Yes (Hospitalization, Other)
  Sender: FDA-Public Use
  Company Number: GB-NORGINE LIMITED-NOR202303593

PATIENT
  Age: 34 Year
  Sex: Female

DRUGS (209)
  1. ADALIMUMAB [Suspect]
     Active Substance: ADALIMUMAB\ISOPROPYL ALCOHOL
     Indication: Crohn^s disease
     Dosage: 1 DOSAGE FORM (1 UNIT)
     Route: 050
  2. ADALIMUMAB [Suspect]
     Active Substance: ADALIMUMAB\ISOPROPYL ALCOHOL
     Dosage: 1 UNIT
     Route: 050
  3. ADALIMUMAB [Suspect]
     Active Substance: ADALIMUMAB\ISOPROPYL ALCOHOL
     Dosage: UNK (1 UNIT, SINGLE DOSE PEN, UNIT EQUAL TO SURE CLICK)
     Route: 050
  4. ADALIMUMAB [Suspect]
     Active Substance: ADALIMUMAB\ISOPROPYL ALCOHOL
     Dosage: UNK (1 UNIT, SINGLE DOSE PEN, UNIT EQUAL TO SURE CLICK)
     Route: 050
  5. ADALIMUMAB [Suspect]
     Active Substance: ADALIMUMAB\ISOPROPYL ALCOHOL
     Dosage: UNK (1 UNIT, SINGLE DOSE PEN, UNIT EQUAL TO SURE CLICK)
     Route: 050
  6. ADALIMUMAB [Suspect]
     Active Substance: ADALIMUMAB\ISOPROPYL ALCOHOL
     Dosage: UNK (1 UNIT, SINGLE DOSE PEN, UNIT EQUAL TO SURE CLICK)
     Route: 050
  7. ADALIMUMAB [Suspect]
     Active Substance: ADALIMUMAB\ISOPROPYL ALCOHOL
     Dosage: UNK (1 UNIT, SINGLE DOSE PEN, UNIT EQUAL TO SURE CLICK)
     Route: 050
  8. ADALIMUMAB [Suspect]
     Active Substance: ADALIMUMAB\ISOPROPYL ALCOHOL
     Dosage: UNK (SINGLE DOSE PEN)
     Route: 050
  9. ADALIMUMAB [Suspect]
     Active Substance: ADALIMUMAB\ISOPROPYL ALCOHOL
     Dosage: UNK (SINGLE DOSE PEN, UNIT EQUAL TO SURE CLICK)
     Route: 050
  10. ADALIMUMAB [Suspect]
     Active Substance: ADALIMUMAB\ISOPROPYL ALCOHOL
     Dosage: UNK (SINGLE DOSE PEN, UNIT EQUAL TO SURE CLICK)
     Route: 050
  11. ADALIMUMAB [Suspect]
     Active Substance: ADALIMUMAB\ISOPROPYL ALCOHOL
     Dosage: UNK (SINGLE DOSE PEN, UNIT EQUAL TO SURE CLICK)
     Route: 050
  12. ADALIMUMAB [Suspect]
     Active Substance: ADALIMUMAB\ISOPROPYL ALCOHOL
     Dosage: UNK (SINGLE DOSE PEN, UNIT EQUAL TO SURE CLICK)
     Route: 050
  13. ADALIMUMAB [Suspect]
     Active Substance: ADALIMUMAB\ISOPROPYL ALCOHOL
     Dosage: UNK
     Route: 050
  14. ADALIMUMAB [Suspect]
     Active Substance: ADALIMUMAB\ISOPROPYL ALCOHOL
     Dosage: UNK
     Route: 050
  15. ADALIMUMAB [Suspect]
     Active Substance: ADALIMUMAB\ISOPROPYL ALCOHOL
     Dosage: UNK
     Route: 050
  16. ADALIMUMAB [Suspect]
     Active Substance: ADALIMUMAB\ISOPROPYL ALCOHOL
     Dosage: UNK
     Route: 050
  17. ADALIMUMAB [Suspect]
     Active Substance: ADALIMUMAB\ISOPROPYL ALCOHOL
     Dosage: UNK
     Route: 050
  18. ENTYVIO [Suspect]
     Active Substance: VEDOLIZUMAB
     Dosage: UNK; ;
     Route: 050
  19. ENTYVIO [Suspect]
     Active Substance: VEDOLIZUMAB
     Dosage: UNK
     Route: 050
  20. ENTYVIO [Suspect]
     Active Substance: VEDOLIZUMAB
     Dosage: UNK
     Route: 050
  21. ENTYVIO [Suspect]
     Active Substance: VEDOLIZUMAB
     Indication: Product used for unknown indication
     Dosage: UNK, SINGLE DOSE PEN
     Route: 050
  22. ENTYVIO [Suspect]
     Active Substance: VEDOLIZUMAB
     Dosage: UNK, SINGLE DOSE PEN
     Route: 050
  23. ENTYVIO [Suspect]
     Active Substance: VEDOLIZUMAB
     Dosage: UNKNOWN
     Route: 050
  24. ENTYVIO [Suspect]
     Active Substance: VEDOLIZUMAB
     Dosage: UNKNOWN
     Route: 050
  25. ENTYVIO [Suspect]
     Active Substance: VEDOLIZUMAB
     Dosage: UNKNOWN
     Route: 050
  26. ENTYVIO [Suspect]
     Active Substance: VEDOLIZUMAB
     Dosage: UNKNOWN
     Route: 050
  27. ENTYVIO [Suspect]
     Active Substance: VEDOLIZUMAB
     Dosage: UNKNOWN
     Route: 050
  28. ENTYVIO [Suspect]
     Active Substance: VEDOLIZUMAB
     Dosage: UNKNOWN
     Route: 050
  29. ENTYVIO [Suspect]
     Active Substance: VEDOLIZUMAB
     Dosage: UNKNOWN
     Route: 050
  30. ENTYVIO [Suspect]
     Active Substance: VEDOLIZUMAB
     Dosage: UNKNOWN
     Route: 050
  31. ENTYVIO [Suspect]
     Active Substance: VEDOLIZUMAB
     Dosage: UNKNOWN
     Route: 050
  32. ENTYVIO [Suspect]
     Active Substance: VEDOLIZUMAB
     Dosage: UNKNOWN
     Route: 050
  33. ENTYVIO [Suspect]
     Active Substance: VEDOLIZUMAB
     Dosage: UNKNOWN
     Route: 050
  34. ENTYVIO [Suspect]
     Active Substance: VEDOLIZUMAB
     Dosage: UNKNOWN
     Route: 050
  35. ENTYVIO [Suspect]
     Active Substance: VEDOLIZUMAB
     Dosage: UNKNOWN
     Route: 050
  36. ENTYVIO [Suspect]
     Active Substance: VEDOLIZUMAB
     Dosage: UNKNOWN
     Route: 050
  37. ENTYVIO [Suspect]
     Active Substance: VEDOLIZUMAB
     Dosage: UNKNOWN
     Route: 050
  38. ENTYVIO [Suspect]
     Active Substance: VEDOLIZUMAB
     Dosage: UNKNOWN
     Route: 050
  39. ENTYVIO [Suspect]
     Active Substance: VEDOLIZUMAB
     Dosage: UNKNOWN
     Route: 050
  40. ENTYVIO [Suspect]
     Active Substance: VEDOLIZUMAB
     Indication: Crohn^s disease
     Dosage: UNKNOWN
     Route: 065
  41. ENTYVIO [Suspect]
     Active Substance: VEDOLIZUMAB
     Dosage: UNK
     Route: 050
  42. ENTYVIO [Suspect]
     Active Substance: VEDOLIZUMAB
     Dosage: UNK
     Route: 050
  43. INFLIXIMAB [Suspect]
     Active Substance: INFLIXIMAB
     Dosage: UNK
     Route: 050
  44. INFLIXIMAB [Suspect]
     Active Substance: INFLIXIMAB
     Dosage: UNKNOWN
     Route: 050
  45. INFLIXIMAB [Suspect]
     Active Substance: INFLIXIMAB
     Dosage: UNKNOWN
     Route: 050
  46. INFLIXIMAB [Suspect]
     Active Substance: INFLIXIMAB
     Indication: Crohn^s disease
     Dosage: UNK
     Route: 050
  47. INFLIXIMAB [Suspect]
     Active Substance: INFLIXIMAB
     Indication: Product used for unknown indication
     Dosage: UNK
     Route: 050
  48. INFLIXIMAB [Suspect]
     Active Substance: INFLIXIMAB
     Dosage: UNK
     Route: 050
  49. INFLIXIMAB [Suspect]
     Active Substance: INFLIXIMAB
     Dosage: UNK
     Route: 050
  50. INFLIXIMAB [Suspect]
     Active Substance: INFLIXIMAB
     Dosage: UNK
     Route: 050
  51. METHOTREXATE [Suspect]
     Active Substance: METHOTREXATE
     Dosage: UNK
     Route: 065
  52. METHOTREXATE [Suspect]
     Active Substance: METHOTREXATE
     Indication: Product used for unknown indication
     Dosage: UNK
     Route: 050
  53. METHOTREXATE [Suspect]
     Active Substance: METHOTREXATE
     Dosage: UNK
     Route: 050
     Dates: start: 20211112
  54. METHOTREXATE [Suspect]
     Active Substance: METHOTREXATE
     Dosage: UNK
     Route: 050
  55. METHOTREXATE [Suspect]
     Active Substance: METHOTREXATE
     Dosage: UNK
     Route: 050
  56. METHOTREXATE [Suspect]
     Active Substance: METHOTREXATE
     Dosage: UNK
     Route: 050
  57. METHOTREXATE [Suspect]
     Active Substance: METHOTREXATE
     Dosage: UNK
     Route: 050
  58. METHOTREXATE [Suspect]
     Active Substance: METHOTREXATE
     Dosage: UNK
     Route: 050
  59. METHOTREXATE [Suspect]
     Active Substance: METHOTREXATE
     Dosage: UNK
     Route: 050
  60. METHOTREXATE [Suspect]
     Active Substance: METHOTREXATE
     Dosage: UNK
     Route: 050
  61. METHOTREXATE [Suspect]
     Active Substance: METHOTREXATE
     Dosage: UNK
     Route: 050
  62. METHOTREXATE [Suspect]
     Active Substance: METHOTREXATE
     Dosage: UNK
     Route: 050
  63. METHOTREXATE [Suspect]
     Active Substance: METHOTREXATE
     Dosage: UNK
     Route: 050
  64. METHOTREXATE [Suspect]
     Active Substance: METHOTREXATE
     Dosage: UNK
     Route: 050
  65. METHOTREXATE [Suspect]
     Active Substance: METHOTREXATE
     Dosage: UNK
     Route: 050
  66. METHOTREXATE [Suspect]
     Active Substance: METHOTREXATE
     Dosage: UNK
     Route: 050
  67. METHOTREXATE [Suspect]
     Active Substance: METHOTREXATE
     Dosage: UNK
     Route: 050
  68. METHOTREXATE [Suspect]
     Active Substance: METHOTREXATE
     Dosage: UNK
     Route: 050
  69. METHOTREXATE [Suspect]
     Active Substance: METHOTREXATE
     Dosage: UNK
     Route: 050
  70. METHOTREXATE [Suspect]
     Active Substance: METHOTREXATE
     Dosage: UNK
     Route: 050
  71. METHOTREXATE [Suspect]
     Active Substance: METHOTREXATE
     Dosage: UNK
     Route: 065
  72. METHOTREXATE [Suspect]
     Active Substance: METHOTREXATE
     Dosage: UNK
     Route: 065
  73. METHOTREXATE [Suspect]
     Active Substance: METHOTREXATE
     Dosage: UNK
     Route: 065
  74. METHOTREXATE [Suspect]
     Active Substance: METHOTREXATE
     Dosage: UNK
     Route: 065
  75. METHOTREXATE [Suspect]
     Active Substance: METHOTREXATE
     Dosage: UNK
     Route: 065
  76. METHOTREXATE [Suspect]
     Active Substance: METHOTREXATE
     Dosage: UNK
     Route: 065
  77. METHOTREXATE [Suspect]
     Active Substance: METHOTREXATE
     Dosage: UNK
     Route: 065
  78. METHOTREXATE SODIUM [Suspect]
     Active Substance: METHOTREXATE SODIUM
     Dosage: UNK
     Route: 050
  79. METHOTREXATE SODIUM [Suspect]
     Active Substance: METHOTREXATE SODIUM
     Dosage: UNKNOWN
     Route: 050
  80. METHOTREXATE SODIUM [Suspect]
     Active Substance: METHOTREXATE SODIUM
     Dosage: UNKNOWN
     Route: 050
  81. METHOTREXATE SODIUM [Suspect]
     Active Substance: METHOTREXATE SODIUM
     Dosage: UNKNOWN
     Route: 050
  82. METHOTREXATE SODIUM [Suspect]
     Active Substance: METHOTREXATE SODIUM
     Dosage: UNKNOWN
     Route: 050
  83. METHOTREXATE SODIUM [Suspect]
     Active Substance: METHOTREXATE SODIUM
     Dosage: UNKNOWN
     Route: 050
  84. METHOTREXATE SODIUM [Suspect]
     Active Substance: METHOTREXATE SODIUM
     Dosage: UNKNOWN
     Route: 050
  85. METHOTREXATE SODIUM [Suspect]
     Active Substance: METHOTREXATE SODIUM
     Dosage: UNKNOWN
     Route: 050
  86. METHOTREXATE SODIUM [Suspect]
     Active Substance: METHOTREXATE SODIUM
     Dosage: UNKNOWN
     Route: 050
  87. METHOTREXATE SODIUM [Suspect]
     Active Substance: METHOTREXATE SODIUM
     Dosage: UNKNOWN
     Route: 050
  88. METHOTREXATE SODIUM [Suspect]
     Active Substance: METHOTREXATE SODIUM
     Dosage: UNKNOWN
     Route: 050
  89. METHOTREXATE SODIUM [Suspect]
     Active Substance: METHOTREXATE SODIUM
     Dosage: UNKNOWN
     Route: 050
  90. METHOTREXATE SODIUM [Suspect]
     Active Substance: METHOTREXATE SODIUM
     Dosage: UNKNOWN
     Route: 050
  91. METHOTREXATE SODIUM [Suspect]
     Active Substance: METHOTREXATE SODIUM
     Dosage: UNKNOWN
     Route: 050
  92. METHOTREXATE SODIUM [Suspect]
     Active Substance: METHOTREXATE SODIUM
     Dosage: UNKNOWN
     Route: 050
  93. METHOTREXATE SODIUM [Suspect]
     Active Substance: METHOTREXATE SODIUM
     Dosage: UNKNOWN
     Route: 050
  94. METHOTREXATE SODIUM [Suspect]
     Active Substance: METHOTREXATE SODIUM
     Dosage: UNKNOWN
     Route: 050
  95. METHOTREXATE SODIUM [Suspect]
     Active Substance: METHOTREXATE SODIUM
     Dosage: UNKNOWN
     Route: 050
  96. METHOTREXATE SODIUM [Suspect]
     Active Substance: METHOTREXATE SODIUM
     Dosage: UNKNOWN
     Route: 050
  97. METHOTREXATE SODIUM [Suspect]
     Active Substance: METHOTREXATE SODIUM
     Dosage: UNKNOWN
     Route: 050
  98. METHOTREXATE SODIUM [Suspect]
     Active Substance: METHOTREXATE SODIUM
     Dosage: UNKNOWN
     Route: 050
  99. METHOTREXATE SODIUM [Suspect]
     Active Substance: METHOTREXATE SODIUM
     Dosage: UNKNOWN
     Route: 050
  100. METHOTREXATE SODIUM [Suspect]
     Active Substance: METHOTREXATE SODIUM
     Indication: Product used for unknown indication
     Dosage: UNKNOWN
     Route: 065
  101. METHOTREXATE SODIUM [Suspect]
     Active Substance: METHOTREXATE SODIUM
     Route: 050
  102. REMICADE [Suspect]
     Active Substance: INFLIXIMAB
     Dosage: UNK
     Route: 042
  103. REMICADE [Suspect]
     Active Substance: INFLIXIMAB
     Dosage: UNK
     Route: 042
  104. REMICADE [Suspect]
     Active Substance: INFLIXIMAB
     Indication: Product used for unknown indication
     Dosage: UNK
     Route: 050
  105. REMICADE [Suspect]
     Active Substance: INFLIXIMAB
     Dosage: UNK
     Route: 050
  106. REMICADE [Suspect]
     Active Substance: INFLIXIMAB
     Dosage: UNK
     Route: 050
  107. REMICADE [Suspect]
     Active Substance: INFLIXIMAB
     Dosage: UNK
     Route: 050
  108. REMICADE [Suspect]
     Active Substance: INFLIXIMAB
     Dosage: UNK; ;
     Route: 050
  109. REMICADE [Suspect]
     Active Substance: INFLIXIMAB
     Dosage: UNKNOWN
     Route: 042
  110. REMICADE [Suspect]
     Active Substance: INFLIXIMAB
     Dosage: UNKNOWN
     Route: 042
  111. REMICADE [Suspect]
     Active Substance: INFLIXIMAB
     Dosage: UNKNOWN
     Route: 042
  112. REMICADE [Suspect]
     Active Substance: INFLIXIMAB
     Dosage: UNKNOWN
     Route: 042
  113. REMICADE [Suspect]
     Active Substance: INFLIXIMAB
     Dosage: UNK
     Route: 042
  114. REMICADE [Suspect]
     Active Substance: INFLIXIMAB
     Dosage: UNK
     Route: 042
  115. REMICADE [Suspect]
     Active Substance: INFLIXIMAB
     Indication: Crohn^s disease
     Dosage: UNK
     Route: 065
  116. REMICADE [Suspect]
     Active Substance: INFLIXIMAB
     Dosage: UNK
     Route: 065
  117. RIFAXIMIN [Suspect]
     Active Substance: RIFAXIMIN
     Dosage: UNK; ;
     Route: 050
  118. RIFAXIMIN [Suspect]
     Active Substance: RIFAXIMIN
     Dosage: UNK
     Route: 050
  119. RIFAXIMIN [Suspect]
     Active Substance: RIFAXIMIN
     Dosage: UNK
     Route: 050
  120. RIFAXIMIN [Suspect]
     Active Substance: RIFAXIMIN
     Dosage: UNK
     Route: 050
  121. RIFAXIMIN [Suspect]
     Active Substance: RIFAXIMIN
     Dosage: UNK
     Route: 050
  122. RIFAXIMIN [Suspect]
     Active Substance: RIFAXIMIN
     Indication: Product used for unknown indication
     Dosage: UNK
     Route: 065
  123. RIFAXIMIN [Suspect]
     Active Substance: RIFAXIMIN
     Dosage: UNK
     Route: 065
  124. RIFAXIMIN [Suspect]
     Active Substance: RIFAXIMIN
     Dosage: UNK
     Route: 065
  125. RIFAXIMIN [Suspect]
     Active Substance: RIFAXIMIN
     Dosage: UNK
     Route: 065
  126. RIFAXIMIN [Suspect]
     Active Substance: RIFAXIMIN
     Dosage: UNK
     Route: 065
  127. RIFAXIMIN [Suspect]
     Active Substance: RIFAXIMIN
     Dosage: UNK
     Route: 065
  128. RIFAXIMIN [Suspect]
     Active Substance: RIFAXIMIN
     Dosage: UNK
     Route: 065
  129. RIFAXIMIN [Suspect]
     Active Substance: RIFAXIMIN
     Dosage: UNK
     Route: 065
  130. RIFAXIMIN [Suspect]
     Active Substance: RIFAXIMIN
     Dosage: UNK
     Route: 065
  131. RIFAXIMIN [Suspect]
     Active Substance: RIFAXIMIN
     Dosage: UNK
     Route: 065
  132. RIFAXIMIN [Suspect]
     Active Substance: RIFAXIMIN
     Dosage: UNK
     Route: 065
  133. RIFAXIMIN [Suspect]
     Active Substance: RIFAXIMIN
     Dosage: UNK
     Route: 065
  134. RIFAXIMIN [Suspect]
     Active Substance: RIFAXIMIN
     Dosage: UNK
     Route: 065
  135. RIFAXIMIN [Suspect]
     Active Substance: RIFAXIMIN
     Dosage: UNK
     Route: 065
  136. RIFAXIMIN [Suspect]
     Active Substance: RIFAXIMIN
     Dosage: UNK
     Route: 050
  137. RIFAXIMIN [Suspect]
     Active Substance: RIFAXIMIN
     Indication: Product used for unknown indication
     Dosage: UNK
     Route: 065
  138. RIFAXIMIN [Suspect]
     Active Substance: RIFAXIMIN
     Dosage: UNK; ;
     Route: 050
  139. RIFAXIMIN [Suspect]
     Active Substance: RIFAXIMIN
     Dosage: UNKNOWN
     Route: 050
  140. RIFAXIMIN [Suspect]
     Active Substance: RIFAXIMIN
     Dosage: UNKNOWN
     Route: 050
  141. RIFAXIMIN [Suspect]
     Active Substance: RIFAXIMIN
     Dosage: UNKNOWN
     Route: 050
  142. RIFAXIMIN [Suspect]
     Active Substance: RIFAXIMIN
     Dosage: UNKNOWN
     Route: 050
  143. RIFAXIMIN [Suspect]
     Active Substance: RIFAXIMIN
     Dosage: UNKNOWN
     Route: 050
  144. RIFAXIMIN [Suspect]
     Active Substance: RIFAXIMIN
     Dosage: UNKNOWN
     Route: 050
  145. RIFAXIMIN [Suspect]
     Active Substance: RIFAXIMIN
     Dosage: UNKNOWN
     Route: 050
  146. RIFAXIMIN [Suspect]
     Active Substance: RIFAXIMIN
     Dosage: UNKNOWN
     Route: 050
  147. RIFAXIMIN [Suspect]
     Active Substance: RIFAXIMIN
     Dosage: UNKNOWN
     Route: 050
  148. RIFAXIMIN [Suspect]
     Active Substance: RIFAXIMIN
     Dosage: UNKNOWN
     Route: 050
  149. RIFAXIMIN [Suspect]
     Active Substance: RIFAXIMIN
     Dosage: UNKNOWN
     Route: 050
  150. RIFAXIMIN [Suspect]
     Active Substance: RIFAXIMIN
     Dosage: UNKNOWN
     Route: 050
  151. RIFAXIMIN [Suspect]
     Active Substance: RIFAXIMIN
     Dosage: UNKNOWN
     Route: 050
  152. RIFAXIMIN [Suspect]
     Active Substance: RIFAXIMIN
     Dosage: UNKNOWN
     Route: 050
  153. RIFAXIMIN [Suspect]
     Active Substance: RIFAXIMIN
     Dosage: UNKNOWN
     Route: 050
  154. RIFAXIMIN [Suspect]
     Active Substance: RIFAXIMIN
     Dosage: UNKNOWN
     Route: 050
  155. RIFAXIMIN [Suspect]
     Active Substance: RIFAXIMIN
     Dosage: UNKNOWN
     Route: 050
  156. RIFAXIMIN [Suspect]
     Active Substance: RIFAXIMIN
     Dosage: UNKNOWN
     Route: 050
  157. RIFAXIMIN [Suspect]
     Active Substance: RIFAXIMIN
     Dosage: UNKNOWN
     Route: 050
  158. RIFAXIMIN [Suspect]
     Active Substance: RIFAXIMIN
     Dosage: UNKNOWN
     Route: 050
  159. RIFAXIMIN [Suspect]
     Active Substance: RIFAXIMIN
     Dosage: UNKNOWN
     Route: 050
  160. RIFAXIMIN [Suspect]
     Active Substance: RIFAXIMIN
     Dosage: UNKNOWN
     Route: 050
  161. VEDOLIZUMAB [Suspect]
     Active Substance: VEDOLIZUMAB
     Dosage: UNK
     Route: 050
  162. VEDOLIZUMAB [Suspect]
     Active Substance: VEDOLIZUMAB
     Dosage: UNK
     Route: 050
  163. VEDOLIZUMAB [Suspect]
     Active Substance: VEDOLIZUMAB
     Dosage: UNK
     Route: 050
  164. VEDOLIZUMAB [Suspect]
     Active Substance: VEDOLIZUMAB
     Dosage: UNK
     Route: 050
  165. VEDOLIZUMAB [Suspect]
     Active Substance: VEDOLIZUMAB
     Dosage: UNK
     Route: 050
  166. VEDOLIZUMAB [Suspect]
     Active Substance: VEDOLIZUMAB
     Dosage: UNK
     Route: 050
  167. VEDOLIZUMAB [Suspect]
     Active Substance: VEDOLIZUMAB
     Dosage: UNK
     Route: 050
  168. VEDOLIZUMAB [Suspect]
     Active Substance: VEDOLIZUMAB
     Dosage: UNK
     Route: 050
  169. VEDOLIZUMAB [Suspect]
     Active Substance: VEDOLIZUMAB
     Dosage: UNK
     Route: 050
  170. VEDOLIZUMAB [Suspect]
     Active Substance: VEDOLIZUMAB
     Dosage: UNK
     Route: 050
  171. VEDOLIZUMAB [Suspect]
     Active Substance: VEDOLIZUMAB
     Dosage: UNK
     Route: 050
  172. VEDOLIZUMAB [Suspect]
     Active Substance: VEDOLIZUMAB
     Dosage: UNK
     Route: 050
  173. VEDOLIZUMAB [Suspect]
     Active Substance: VEDOLIZUMAB
     Indication: Crohn^s disease
     Dosage: UNK
     Route: 065
  174. VEDOLIZUMAB [Suspect]
     Active Substance: VEDOLIZUMAB
     Dosage: UNK
     Route: 065
  175. VEDOLIZUMAB [Suspect]
     Active Substance: VEDOLIZUMAB
     Dosage: UNK
     Route: 065
  176. VEDOLIZUMAB [Suspect]
     Active Substance: VEDOLIZUMAB
     Dosage: UNK
     Route: 065
  177. VEDOLIZUMAB [Suspect]
     Active Substance: VEDOLIZUMAB
     Dosage: UNK
     Route: 065
  178. VEDOLIZUMAB [Suspect]
     Active Substance: VEDOLIZUMAB
     Dosage: UNK
     Route: 065
  179. VEDOLIZUMAB [Suspect]
     Active Substance: VEDOLIZUMAB
     Dosage: UNK
     Route: 065
  180. VEDOLIZUMAB [Suspect]
     Active Substance: VEDOLIZUMAB
     Dosage: UNK
     Route: 065
  181. VEDOLIZUMAB [Suspect]
     Active Substance: VEDOLIZUMAB
     Dosage: UNK
     Route: 065
  182. VEDOLIZUMAB [Suspect]
     Active Substance: VEDOLIZUMAB
     Dosage: UNK
     Route: 065
  183. VEDOLIZUMAB [Suspect]
     Active Substance: VEDOLIZUMAB
     Dosage: UNK
     Route: 065
  184. VEDOLIZUMAB [Suspect]
     Active Substance: VEDOLIZUMAB
     Dosage: UNK
     Route: 065
  185. VEDOLIZUMAB [Suspect]
     Active Substance: VEDOLIZUMAB
     Dosage: UNK
     Route: 065
  186. VEDOLIZUMAB [Suspect]
     Active Substance: VEDOLIZUMAB
     Dosage: UNK
     Route: 065
  187. VEDOLIZUMAB [Suspect]
     Active Substance: VEDOLIZUMAB
     Dosage: UNK
     Route: 065
  188. VEDOLIZUMAB [Suspect]
     Active Substance: VEDOLIZUMAB
     Dosage: UNK
     Route: 065
  189. VEDOLIZUMAB [Suspect]
     Active Substance: VEDOLIZUMAB
     Dosage: UNK
     Route: 065
  190. VEDOLIZUMAB [Suspect]
     Active Substance: VEDOLIZUMAB
     Dosage: UNK
     Route: 065
  191. VEDOLIZUMAB [Suspect]
     Active Substance: VEDOLIZUMAB
     Dosage: UNK
     Route: 065
  192. VEDOLIZUMAB [Suspect]
     Active Substance: VEDOLIZUMAB
     Dosage: UNK
     Route: 065
  193. VEDOLIZUMAB [Suspect]
     Active Substance: VEDOLIZUMAB
     Dosage: UNK
     Route: 065
  194. VEDOLIZUMAB [Suspect]
     Active Substance: VEDOLIZUMAB
     Dosage: UNK
     Route: 065
  195. VEDOLIZUMAB [Suspect]
     Active Substance: VEDOLIZUMAB
     Dosage: UNK
     Route: 065
  196. VEDOLIZUMAB [Suspect]
     Active Substance: VEDOLIZUMAB
     Dosage: UNK
     Route: 065
  197. VEDOLIZUMAB [Suspect]
     Active Substance: VEDOLIZUMAB
     Dosage: UNK
     Route: 065
  198. VEDOLIZUMAB [Suspect]
     Active Substance: VEDOLIZUMAB
     Dosage: UNK
     Route: 065
  199. VEDOLIZUMAB [Suspect]
     Active Substance: VEDOLIZUMAB
     Dosage: UNK
     Route: 065
  200. VEDOLIZUMAB [Suspect]
     Active Substance: VEDOLIZUMAB
     Dosage: UNK
     Route: 065
  201. VEDOLIZUMAB [Suspect]
     Active Substance: VEDOLIZUMAB
     Dosage: UNK
     Route: 065
  202. VEDOLIZUMAB [Suspect]
     Active Substance: VEDOLIZUMAB
     Dosage: UNK
     Route: 065
  203. HYRIMOZ [Concomitant]
     Active Substance: ADALIMUMAB-ADAZ
     Indication: Product used for unknown indication
     Dosage: UNK, SENSO-READ PEN
     Route: 050
  204. HYRIMOZ [Concomitant]
     Active Substance: ADALIMUMAB-ADAZ
     Dosage: UNK, SENSO-READ PEN
     Route: 050
  205. HYRIMOZ [Concomitant]
     Active Substance: ADALIMUMAB-ADAZ
     Dosage: UNK, SENSO-READ PEN
     Route: 050
  206. HYRIMOZ [Concomitant]
     Active Substance: ADALIMUMAB-ADAZ
     Dosage: UNK, SENSO-READ PEN
     Route: 050
  207. HYRIMOZ [Concomitant]
     Active Substance: ADALIMUMAB-ADAZ
     Dosage: UNK; ;
     Route: 065
  208. USTEKINUMAB [Concomitant]
     Active Substance: USTEKINUMAB
     Dosage: UNK
     Route: 050
     Dates: start: 20211112, end: 2022
  209. USTEKINUMAB [Concomitant]
     Active Substance: USTEKINUMAB
     Indication: Product used for unknown indication
     Dosage: UNK; ;
     Route: 050
     Dates: start: 20211112, end: 2022

REACTIONS (11)
  - Small intestinal obstruction [Unknown]
  - Crohn^s disease [Unknown]
  - Pneumonia [Unknown]
  - Pancreatitis [Unknown]
  - Frequent bowel movements [Unknown]
  - Nerve injury [Unknown]
  - Gastrointestinal bacterial overgrowth [Unknown]
  - Quality of life decreased [Unknown]
  - Incontinence [Unknown]
  - Drug specific antibody [Unknown]
  - Drug ineffective [Unknown]

NARRATIVE: CASE EVENT DATE: 20220101
